FAERS Safety Report 7797081-4 (Version None)
Quarter: 2011Q4

REPORT INFORMATION
  Report Type: 
  Country: None (occurrence: None)
  Receive Date: 20111005
  Receipt Date: 20110928
  Transmission Date: 20120403
  Serious: Yes (Hospitalization)
  Sender: FDA-Public Use
  Company Number: IE-B.I. PHARMACEUTICALS,INC./RIDGEFIELD-2011-UK-01041UK

PATIENT
  Age: 67 Year
  Sex: Male

DRUGS (8)
  1. NU-SEALS 75MG GASTRO-RESISTANT TABLETS [Concomitant]
     Dosage: 75 MG
     Route: 048
  2. MOBICAM [Suspect]
     Indication: POSTOPERATIVE CARE
  3. MOBIC [Suspect]
     Indication: POSTOPERATIVE CARE
     Dosage: 15 MG
     Route: 048
     Dates: start: 20090301
  4. DIOVAN HCT [Concomitant]
  5. ZANIDIP 20MG FILM COATED TABLETS [Concomitant]
     Dosage: 20 MG
     Route: 048
  6. NEXIUM [Concomitant]
     Dosage: 40 MG
     Route: 048
  7. VENTOLIN [Concomitant]
     Dosage: 100 NR
     Route: 055
  8. SERETIDE 250 EVOHALER 25/250UG/DOSE PRESSURE [Concomitant]
     Dosage: 25/250 MICROGRAM
     Route: 055

REACTIONS (1)
  - RENAL IMPAIRMENT [None]
